FAERS Safety Report 10032577 (Version 3)
Quarter: 2014Q3

REPORT INFORMATION
  Report Type: Report from Study
  Country: US (occurrence: US)
  Receive Date: 20140324
  Receipt Date: 20140801
  Transmission Date: 20150326
  Serious: Yes (Hospitalization, Other)
  Sender: FDA-Public Use
  Company Number: US-ABBVIE-14P-163-1213142-00

PATIENT
  Sex: Female

DRUGS (5)
  1. LEVOTHYROXINE [Concomitant]
     Active Substance: LEVOTHYROXINE
     Indication: HYPOTHYROIDISM
  2. HUMIRA [Suspect]
     Active Substance: ADALIMUMAB
     Indication: PSORIASIS
     Dates: start: 2004
  3. ATENOLOL. [Concomitant]
     Active Substance: ATENOLOL
     Indication: HYPERTENSION
  4. ATORVASTATIN [Concomitant]
     Active Substance: ATORVASTATIN
     Indication: BLOOD CHOLESTEROL INCREASED
  5. BABY ASPIRIN [Concomitant]
     Active Substance: ASPIRIN
     Indication: PROPHYLAXIS
     Dosage: BEFORE BED; LOW DOSE

REACTIONS (9)
  - Hypothyroidism [Unknown]
  - Blood pressure increased [Recovering/Resolving]
  - Headache [Unknown]
  - Procedural pain [Unknown]
  - Rash papular [Recovering/Resolving]
  - Unevaluable event [Unknown]
  - Migraine [Recovered/Resolved]
  - Arthropathy [Not Recovered/Not Resolved]
  - Osteoarthritis [Unknown]
